FAERS Safety Report 14987863 (Version 1)
Quarter: 2018Q2

REPORT INFORMATION
  Report Type: Spontaneous
  Country: IT (occurrence: IT)
  Receive Date: 20180608
  Receipt Date: 20180608
  Transmission Date: 20180711
  Serious: Yes (Other)
  Sender: FDA-Public Use
  Company Number: IT-ELI_LILLY_AND_COMPANY-IT201805013193

PATIENT
  Age: 70 Year
  Sex: Female

DRUGS (8)
  1. ANNISTER [Concomitant]
     Dosage: 1 DF, UNKNOWN
     Route: 048
  2. GLICLAZIDE [Concomitant]
     Active Substance: GLICLAZIDE
     Indication: TYPE 2 DIABETES MELLITUS
     Dosage: 60 MG, UNKNOWN
     Route: 048
  3. TRULICITY [Suspect]
     Active Substance: DULAGLUTIDE
     Indication: TYPE 2 DIABETES MELLITUS
     Dosage: 1.5 MG, WEEKLY (1/W)
     Route: 058
     Dates: start: 20180504, end: 20180504
  4. TERAXANS [Concomitant]
     Active Substance: INDAPAMIDE\PERINDOPRIL ARGININE
     Dosage: 1 DF, UNKNOWN
     Route: 048
  5. GLUCOBAY [Concomitant]
     Active Substance: ACARBOSE
     Dosage: 2 DF, UNKNOWN
     Route: 048
  6. CARDIOASPIRIN [Concomitant]
     Active Substance: ASPIRIN
     Dosage: 1 DF, UNKNOWN
     Route: 065
  7. LOPRESOR                           /00376902/ [Concomitant]
     Active Substance: METOPROLOL TARTRATE
     Dosage: 2 DF, UNKNOWN
     Route: 048
  8. ESOMEPRAZOLE [Concomitant]
     Active Substance: ESOMEPRAZOLE
     Dosage: 40 MG, UNKNOWN
     Route: 048

REACTIONS (8)
  - Nausea [Recovering/Resolving]
  - Vomiting [Recovering/Resolving]
  - Pharyngeal oedema [Recovering/Resolving]
  - Swollen tongue [Recovering/Resolving]
  - Paraesthesia [Recovering/Resolving]
  - Blood creatine phosphokinase increased [Recovering/Resolving]
  - Diarrhoea [Recovering/Resolving]
  - Lip swelling [Recovering/Resolving]

NARRATIVE: CASE EVENT DATE: 20180504
